FAERS Safety Report 14691235 (Version 1)
Quarter: 2018Q1

REPORT INFORMATION
  Report Type: Spontaneous
  Country: US (occurrence: US)
  Receive Date: 20180327
  Receipt Date: 20180327
  Transmission Date: 20180509
  Serious: Yes (Hospitalization)
  Sender: FDA-Public Use
  Company Number: None

PATIENT
  Age: 31 Year
  Sex: Male
  Weight: 102.9 kg

DRUGS (8)
  1. CYCLOPHOSPHAMIDE. [Suspect]
     Active Substance: CYCLOPHOSPHAMIDE
     Dates: end: 20180313
  2. METHOTREXATE. [Suspect]
     Active Substance: METHOTREXATE
  3. DEXAMETHASONE. [Suspect]
     Active Substance: DEXAMETHASONE
     Dates: end: 20180228
  4. MERCAPTOPURINE. [Suspect]
     Active Substance: MERCAPTOPURINE
     Dates: end: 20180319
  5. VINCRISTINE SULFATE. [Suspect]
     Active Substance: VINCRISTINE SULFATE
     Dates: end: 20180301
  6. CYTARABINE. [Suspect]
     Active Substance: CYTARABINE
     Dates: end: 20180316
  7. DAUNORUBICIN [Suspect]
     Active Substance: DAUNORUBICIN
     Dates: end: 20180301
  8. ONCASPAR [Suspect]
     Active Substance: PEGASPARGASE
     Dates: end: 20180225

REACTIONS (5)
  - Febrile neutropenia [None]
  - Abdominal pain [None]
  - Hepatotoxicity [None]
  - Blood bilirubin increased [None]
  - Dyspnoea [None]

NARRATIVE: CASE EVENT DATE: 20180319
